FAERS Safety Report 8526032-X (Version None)
Quarter: 2012Q3

REPORT INFORMATION
  Report Type: 
  Country: None (occurrence: None)
  Receive Date: 20120720
  Receipt Date: 20120719
  Transmission Date: 20120928
  Serious: Yes (Death, Life-Threatening, Hospitalization)
  Sender: FDA-Public Use
  Company Number: US-009507513-1206USA05008

PATIENT

DRUGS (18)
  1. OMEPRAZOLE [Concomitant]
     Indication: ABDOMINAL PAIN UPPER
     Dosage: UNK
     Dates: start: 20120531
  2. METOCLOPRAMIDE [Concomitant]
     Indication: VOMITING
     Dosage: UNK
     Dates: start: 20120613
  3. CISPLATIN [Suspect]
     Indication: METASTATIC GASTRIC CANCER
  4. NUTRITIONAL SUPPLEMENTS [Concomitant]
     Indication: DECREASED APPETITE
     Dosage: UNK
     Dates: start: 20120509
  5. MORPHINE SULFATE [Concomitant]
     Dosage: UNK
     Dates: start: 20120531, end: 20120611
  6. ACETAMINOPHEN [Concomitant]
     Indication: PAIN
     Dosage: UNK
     Dates: start: 20120614, end: 20120614
  7. GABAPENTIN [Concomitant]
     Indication: BACK PAIN
     Dosage: UNK
     Dates: start: 20120612
  8. LORAZEPAM [Concomitant]
     Indication: DEPRESSION
     Dosage: UNK
     Dates: start: 20120612
  9. COZAAR [Suspect]
     Indication: HYPERTENSION
     Dosage: UNK
     Route: 048
     Dates: start: 20080101, end: 20120101
  10. GIMERACIL (+) OTERACIL POTASSIUM (+) TEGAFUR [Suspect]
     Indication: METASTATIC GASTRIC CANCER
  11. DOMPERIDONE [Concomitant]
     Indication: NAUSEA
     Dosage: UNK
     Dates: start: 20120531
  12. NORTRIPTYLINE HYDROCHLORIDE [Concomitant]
     Indication: DEPRESSION
     Dosage: UNK
     Dates: start: 20120612
  13. METOCLOPRAMIDE [Concomitant]
     Indication: NAUSEA
     Dosage: UNK
     Dates: start: 20120612, end: 20120612
  14. ALPRAZOLAM [Concomitant]
     Indication: DEPRESSION
  15. FLUOXETINE HYDROCHLORIDE [Concomitant]
     Indication: DEPRESSION
     Dosage: UNK
     Dates: start: 20080101, end: 20120612
  16. MORPHINE SULFATE [Concomitant]
     Indication: BACK PAIN
     Dosage: UNK
     Dates: start: 20120612
  17. DIPYRONE [Concomitant]
     Indication: BACK PAIN
     Dosage: UNK
     Dates: start: 20120612, end: 20120612
  18. DOMPERIDONE [Concomitant]
     Indication: VOMITING

REACTIONS (1)
  - RENAL FAILURE ACUTE [None]
